FAERS Safety Report 7264625 (Version 4)
Quarter: 2013Q1

REPORT INFORMATION
  Report Type: Report from Study
  Country: US (occurrence: US)
  Receive Date: 20100130
  Receipt Date: 20130215
  Transmission Date: 20140127
  Serious: Yes (Other)
  Sender: FDA-Public Use
  Company Number: US-ABBOTT-09P-163-0607049-00

PATIENT
  Sex: Female
  Weight: 74.46 kg

DRUGS (13)
  1. HUMIRA 40 MG/0.8 ML PEN [Suspect]
     Indication: RHEUMATOID ARTHRITIS
     Route: 058
     Dates: start: 20070122, end: 20090223
  2. HUMIRA 40 MG/0.8 ML PEN [Suspect]
     Dates: start: 20090223, end: 201005
  3. HUMIRA 40 MG/0.8 ML PEN [Suspect]
     Dates: start: 20100512, end: 20101101
  4. METHOTREXATE [Concomitant]
     Indication: RHEUMATOID ARTHRITIS
     Dates: start: 2004, end: 2010
  5. PLAQUENIL [Concomitant]
     Indication: RHEUMATOID ARTHRITIS
     Dates: start: 20091026, end: 20101101
  6. EVISTA [Concomitant]
     Indication: OSTEOPOROSIS
  7. SIMVASTATIN [Concomitant]
     Indication: BLOOD CHOLESTEROL INCREASED
  8. PAXIL [Concomitant]
     Indication: DEPRESSION
  9. ACYCLOVIR [Concomitant]
     Indication: ORAL HERPES
  10. FOLIC ACID [Concomitant]
     Indication: VITAMIN SUPPLEMENTATION
  11. CITRICAL [Concomitant]
     Indication: PRODUCT USED FOR UNKNOWN INDICATION
  12. TYLENOL [Concomitant]
     Indication: PRODUCT USED FOR UNKNOWN INDICATION
  13. ASPIRIN [Concomitant]
     Indication: PROPHYLAXIS

REACTIONS (5)
  - Basal cell carcinoma [Recovered/Resolved]
  - Erythema [Recovered/Resolved]
  - Skin lesion [Recovered/Resolved]
  - Red blood cell sedimentation rate increased [Unknown]
  - Rheumatoid arthritis [Not Recovered/Not Resolved]
